FAERS Safety Report 4698095-3 (Version None)
Quarter: 2005Q2

REPORT INFORMATION
  Report Type: 
  Country: None (occurrence: None)
  Receive Date: 20050622
  Receipt Date: 20050622
  Transmission Date: 20051028
  Serious: Yes (Hospitalization, Disabling)
  Sender: FDA-Public Use
  Company Number: None

PATIENT
  Age: 18 Year
  Sex: Female

DRUGS (2)
  1. PROMETHAZINE [Suspect]
     Indication: NAUSEA
     Dates: start: 20050610, end: 20050610
  2. PROMETHAZINE [Suspect]
     Indication: VOMITING
     Dates: start: 20050610, end: 20050610

REACTIONS (9)
  - BLISTER [None]
  - EXTRAVASATION [None]
  - HYPOAESTHESIA [None]
  - INFUSION SITE BURNING [None]
  - OEDEMA PERIPHERAL [None]
  - PAIN IN EXTREMITY [None]
  - PERIPHERAL VASCULAR DISORDER [None]
  - PHARMACEUTICAL PRODUCT COMPLAINT [None]
  - SKIN DISCOLOURATION [None]
